APPROVED DRUG PRODUCT: DOXEPIN HYDROCHLORIDE
Active Ingredient: DOXEPIN HYDROCHLORIDE
Strength: EQ 25MG BASE
Dosage Form/Route: CAPSULE;ORAL
Application: A070791 | Product #003 | TE Code: AB
Applicant: MYLAN PHARMACEUTICALS INC
Approved: May 13, 1986 | RLD: No | RS: Yes | Type: RX